FAERS Safety Report 4915048-8 (Version None)
Quarter: 2006Q1

REPORT INFORMATION
  Report Type: 
  Country: None (occurrence: None)
  Receive Date: 20060217
  Receipt Date: 20060208
  Transmission Date: 20060701
  Serious: Yes (Hospitalization, Other)
  Sender: FDA-Public Use
  Company Number: TR-BRISTOL-MYERS SQUIBB COMPANY-13275730

PATIENT
  Age: 55 Year
  Sex: Female
  Weight: 80 kg

DRUGS (7)
  1. KARVEA [Suspect]
     Indication: HYPERTENSION
     Route: 048
     Dates: start: 20040101, end: 20060131
  2. DILTIAZEM HCL [Concomitant]
     Indication: HYPERTENSION
     Route: 048
  3. PULMICORT [Concomitant]
     Indication: ASTHMA
     Route: 055
  4. BRICANYL [Concomitant]
     Indication: ASTHMA
     Route: 055
  5. VASTAREL [Concomitant]
     Indication: VERTIGO
     Route: 048
  6. BETASERC [Concomitant]
     Indication: VERTIGO
     Route: 048
  7. TEFOR [Concomitant]
     Indication: HYPOTHYROIDISM
     Route: 048

REACTIONS (1)
  - ASTHMA [None]
